FAERS Safety Report 13113381 (Version 1)
Quarter: 2017Q1

REPORT INFORMATION
  Report Type: Spontaneous
  Country: GB (occurrence: GB)
  Receive Date: 20170113
  Receipt Date: 20170113
  Transmission Date: 20170428
  Serious: Yes (Other)
  Sender: FDA-Public Use
  Company Number: GB-009507513-1701GBR005101

PATIENT
  Sex: Male

DRUGS (3)
  1. VERAPAMIL [Concomitant]
     Active Substance: VERAPAMIL HYDROCHLORIDE
     Indication: CLUSTER HEADACHE
     Dosage: 320 MG, TID
  2. OXYGEN. [Concomitant]
     Active Substance: OXYGEN
     Indication: CLUSTER HEADACHE
     Dosage: 15 L, UNK
     Route: 055
  3. MAXALT [Suspect]
     Active Substance: RIZATRIPTAN BENZOATE
     Indication: CLUSTER HEADACHE
     Dosage: UP TO 14 TO 16 TABLETS A DAY
     Route: 048

REACTIONS (3)
  - Prescribed overdose [Unknown]
  - Product use issue [Unknown]
  - Neurostimulator implantation [Unknown]
